FAERS Safety Report 7629237-5 (Version None)
Quarter: 2011Q3

REPORT INFORMATION
  Report Type: 
  Country: None (occurrence: None)
  Receive Date: 20110722
  Receipt Date: 20110718
  Transmission Date: 20111222
  Serious: Yes (Life-Threatening, Hospitalization)
  Sender: FDA-Public Use
  Company Number: PHHO2011DK10679

PATIENT
  Sex: Female

DRUGS (4)
  1. CERTICAN [Suspect]
     Indication: HEART TRANSPLANT
     Dosage: UNK
     Route: 048
     Dates: start: 20110413, end: 20110621
  2. SANDIMMUNE [Suspect]
     Indication: HEART TRANSPLANT
     Dosage: 10 MG, UNK
     Dates: start: 20110413, end: 20110621
  3. MYCOPHENOLATE MOFETIL [Suspect]
     Indication: HEART TRANSPLANT
     Dosage: 2000 MG, UNK
     Dates: start: 20110413, end: 20110621
  4. PREDNISONE [Suspect]
     Indication: HEART TRANSPLANT
     Dosage: 200 MG, UNK
     Dates: start: 20110413, end: 20110621

REACTIONS (4)
  - RESPIRATORY FAILURE [None]
  - LEUKOPENIA [None]
  - SEPTIC SHOCK [None]
  - PNEUMONIA [None]
